FAERS Safety Report 24563610 (Version 1)
Quarter: 2024Q4

REPORT INFORMATION
  Report Type: Spontaneous
  Country: US (occurrence: US)
  Receive Date: 20241030
  Receipt Date: 20241030
  Transmission Date: 20250115
  Serious: No
  Sender: BIOGEN
  Company Number: US-BIOGEN-2022BI01160656

PATIENT
  Age: 36 Year
  Sex: Female

DRUGS (1)
  1. TYSABRI [Suspect]
     Active Substance: NATALIZUMAB
     Indication: Multiple sclerosis
     Dosage: 300MG/15ML
     Route: 050
     Dates: start: 20100316

REACTIONS (4)
  - Prescribed underdose [Not Recovered/Not Resolved]
  - Inappropriate schedule of product administration [Unknown]
  - Stress [Unknown]
  - Fatigue [Unknown]

NARRATIVE: CASE EVENT DATE: 20221007
